FAERS Safety Report 8979273 (Version 1)
Quarter: 2012Q4

REPORT INFORMATION
  Report Type: 
  Country: US (occurrence: US)
  Receive Date: 20121221
  Receipt Date: 20121221
  Transmission Date: 20130627
  Serious: Yes (Other)
  Sender: FDA-Public Use
  Company Number: US-ROCHE-1172920

PATIENT
  Age: 14 Year
  Sex: Male
  Weight: 123.49 kg

DRUGS (2)
  1. XOLAIR [Suspect]
     Indication: ASTHMA
     Route: 058
     Dates: start: 201203
  2. SYMBICORT [Concomitant]

REACTIONS (1)
  - Suicidal ideation [Unknown]
